FAERS Safety Report 5360232-5 (Version None)
Quarter: 2007Q2

REPORT INFORMATION
  Report Type: 
  Country: None (occurrence: None)
  Receive Date: 20070618
  Receipt Date: 20070612
  Transmission Date: 20071010
  Serious: Yes (Death)
  Sender: FDA-Public Use
  Company Number: FR-ELI_LILLY_AND_COMPANY-FR200706003174

PATIENT
  Sex: Male

DRUGS (5)
  1. ZYPREXA [Suspect]
     Route: 048
  2. DEPAMIDE [Concomitant]
     Route: 048
  3. RISPERDAL [Concomitant]
     Route: 048
  4. DEROXAT [Concomitant]
     Route: 048
  5. LEXOMIL [Concomitant]
     Route: 048

REACTIONS (1)
  - DEATH [None]
